FAERS Safety Report 23077200 (Version 2)
Quarter: 2023Q4

REPORT INFORMATION
  Report Type: Spontaneous
  Country: IT (occurrence: IT)
  Receive Date: 20231018
  Receipt Date: 20231103
  Transmission Date: 20240110
  Serious: Yes (Hospitalization, Other)
  Sender: FDA-Public Use
  Company Number: None

PATIENT
  Age: 55 Year
  Sex: Female

DRUGS (12)
  1. KEYTRUDA [Suspect]
     Active Substance: PEMBROLIZUMAB
     Indication: Triple negative breast cancer
     Dosage: 200 MILLIGRAMS, EVERY 3 WEEKS
     Route: 042
     Dates: start: 20230531, end: 20230620
  2. KEYTRUDA [Suspect]
     Active Substance: PEMBROLIZUMAB
     Dosage: 200 MILLIGRAMS, EVERY 3 WEEKS
     Route: 042
     Dates: start: 20230627, end: 20230628
  3. PACLITAXEL [Suspect]
     Active Substance: PACLITAXEL
     Indication: Triple negative breast cancer
     Dosage: 136.8 MILLIGRAMS, WEEKLY
     Route: 042
     Dates: start: 20230531, end: 20230620
  4. PACLITAXEL [Suspect]
     Active Substance: PACLITAXEL
     Dosage: 136.8 MILLIGRAMS, WEEKLY
     Route: 042
     Dates: start: 20230627, end: 20230628
  5. PACLITAXEL [Suspect]
     Active Substance: PACLITAXEL
     Dosage: 136.8 MILLIGRAM, WEEKLY
     Route: 042
     Dates: start: 20230714
  6. PACLITAXEL [Suspect]
     Active Substance: PACLITAXEL
     Dosage: 136.8 MILLIGRAM, WEEKLY
     Route: 042
     Dates: start: 20230728
  7. CARBOPLATIN [Suspect]
     Active Substance: CARBOPLATIN
     Indication: Triple negative breast cancer
     Dosage: 167.75 MILLIGRAMS, WEEKLY
     Route: 065
     Dates: start: 20230531, end: 20230620
  8. CARBOPLATIN [Suspect]
     Active Substance: CARBOPLATIN
     Dosage: 167.75 MILLIGRAMS, WEEKLY
     Route: 065
     Dates: start: 20230627, end: 20230628
  9. CARBOPLATIN [Suspect]
     Active Substance: CARBOPLATIN
     Dosage: 167.75 MILLIGRAMS, WEEKLY
     Route: 065
     Dates: start: 20230714
  10. CARBOPLATIN [Suspect]
     Active Substance: CARBOPLATIN
     Dosage: 167.75 MILLIGRAMS, WEEKLY
     Route: 065
     Dates: start: 20230727
  11. IBUPROFEN [Concomitant]
     Active Substance: IBUPROFEN
     Indication: Product used for unknown indication
     Dosage: 400 MILLIGRAMS, PM
     Route: 065
  12. LAMIVUDINE [Concomitant]
     Active Substance: LAMIVUDINE
     Indication: Hepatitis B
     Dosage: 100 MILLIGRAMS, QD
     Route: 048
     Dates: start: 20230605

REACTIONS (3)
  - Neutropenia [Recovered/Resolved]
  - Diarrhoea [Recovered/Resolved]
  - Leukopenia [Recovering/Resolving]

NARRATIVE: CASE EVENT DATE: 20230620
